FAERS Safety Report 7973172-X (Version None)
Quarter: 2011Q4

REPORT INFORMATION
  Report Type: 
  Country: None (occurrence: None)
  Receive Date: 20111213
  Receipt Date: 20111130
  Transmission Date: 20120403
  Serious: Yes (Death)
  Sender: FDA-Public Use
  Company Number: US-MYLANLABS-2010S1018416

PATIENT
  Age: 16 Year
  Sex: Male
  Weight: 76.66 kg

DRUGS (9)
  1. ZOLPIDEM TARTRATE [Concomitant]
     Route: 048
  2. HYDROMORPHONE HCL [Suspect]
     Indication: PAIN
     Dosage: TAKE 1 TO 2 ML BY MOUTH EVERY 4 HOURS AS NEEDED FOR PAIN.
     Route: 048
     Dates: start: 20091023, end: 20091025
  3. NICODERM CQ [Concomitant]
     Indication: SMOKING CESSATION THERAPY
     Route: 062
  4. ACYCLOVIR [Concomitant]
     Indication: ORAL HERPES
     Route: 061
  5. OXYCODONE AND ACETAMINOPHEN [Concomitant]
     Indication: PAIN
     Dosage: 10MG/325MG  ^NOT TO BE TAKEN WITH THE DILAUDID^
  6. AMOXICILLIN [Concomitant]
     Route: 048
  7. CLONAZEPAM [Concomitant]
     Indication: CONVULSION
     Dosage: 0.5MG TABLETS
     Route: 048
  8. FENTANYL-100 [Suspect]
     Indication: PAIN
     Route: 062
     Dates: start: 20091026, end: 20091026
  9. FENTANYL-100 [Suspect]
     Route: 062
     Dates: start: 20091026, end: 20091026

REACTIONS (3)
  - OVERDOSE [None]
  - TOXICITY TO VARIOUS AGENTS [None]
  - INTENTIONAL DRUG MISUSE [None]
